FAERS Safety Report 6503070-X (Version None)
Quarter: 2009Q4

REPORT INFORMATION
  Report Type: 
  Country: None (occurrence: None)
  Receive Date: 20091217
  Receipt Date: 20091207
  Transmission Date: 20100525
  Serious: Yes (Hospitalization)
  Sender: FDA-Public Use
  Company Number: JP-ROCHE-674394

PATIENT
  Age: 15 Year
  Sex: Male

DRUGS (2)
  1. TAMIFLU [Suspect]
     Indication: INFLUENZA
     Dosage: DOSE, FREQUENCY UNSPECIFIED.
     Route: 048
     Dates: start: 20091206, end: 20091206
  2. CALONAL [Concomitant]
     Dosage: FORM:ORAL FORMULATION.
     Route: 048

REACTIONS (2)
  - RASH [None]
  - SHOCK [None]
